FAERS Safety Report 8622989-7 (Version None)
Quarter: 2012Q3

REPORT INFORMATION
  Report Type: 
  Country: None (occurrence: None)
  Receive Date: 20120827
  Receipt Date: 20120824
  Transmission Date: 20120928
  Serious: Yes (Death)
  Sender: FDA-Public Use
  Company Number: PHHY2012NL073231

PATIENT
  Sex: Male

DRUGS (4)
  1. ZOMETA [Suspect]
     Dosage: 4MG/100ML , ONCE PER 28 DAYS
     Dates: start: 20120717
  2. ZOMETA [Suspect]
     Dosage: 4MG/100ML , ONCE PER 28 DAYS
     Dates: start: 20120112
  3. ZOMETA [Suspect]
     Indication: PROSTATE CANCER METASTATIC
     Dosage: 4MG/100ML , ONCE PER 28 DAYS
  4. ZOMETA [Suspect]
     Dosage: 4MG/100ML , ONCE PER 28 DAYS
     Dates: start: 20120619

REACTIONS (1)
  - DEATH [None]
